FAERS Safety Report 7213065-9 (Version None)
Quarter: 2011Q1

REPORT INFORMATION
  Report Type: 
  Country: None (occurrence: None)
  Receive Date: 20110106
  Receipt Date: 20101230
  Transmission Date: 20110831
  Serious: Yes (Other)
  Sender: FDA-Public Use
  Company Number: B0692320A

PATIENT
  Sex: Female

DRUGS (9)
  1. PREDNISONE [Concomitant]
     Route: 065
     Dates: start: 20100401
  2. ROSUVASTATIN CALCIUM [Concomitant]
     Route: 065
     Dates: start: 20100831
  3. METHOTREXATE [Concomitant]
     Route: 065
     Dates: start: 20070101
  4. CORDARONE [Suspect]
     Indication: PRODUCT USED FOR UNKNOWN INDICATION
     Route: 065
     Dates: start: 20100101
  5. PENTOXIFYLLINE [Concomitant]
     Route: 065
     Dates: end: 20100101
  6. RYTHMOL [Suspect]
     Indication: PRODUCT USED FOR UNKNOWN INDICATION
     Route: 048
     Dates: start: 20070501, end: 20100922
  7. FOLIC ACID [Concomitant]
     Route: 065
  8. ACETYLSALICYLATE LYSINE [Concomitant]
     Route: 065
     Dates: start: 20100101
  9. TOCILIZUMAB [Suspect]
     Indication: PRODUCT USED FOR UNKNOWN INDICATION
     Route: 042
     Dates: start: 20100610, end: 20101123

REACTIONS (5)
  - POTENTIATING DRUG INTERACTION [None]
  - ATRIAL FIBRILLATION [None]
  - MACULAR DEGENERATION [None]
  - DRUG INEFFECTIVE [None]
  - ARRHYTHMIA [None]
